FAERS Safety Report 16855212 (Version 1)
Quarter: 2019Q3

REPORT INFORMATION
  Report Type: Spontaneous
  Country: US (occurrence: US)
  Receive Date: 20190926
  Receipt Date: 20190926
  Transmission Date: 20191005
  Serious: No
  Sender: FDA-Public Use
  Company Number: US-BION-008005

PATIENT
  Age: 59 Year
  Sex: Female
  Weight: 108.86 kg

DRUGS (1)
  1. IMODIUM A-D [Suspect]
     Active Substance: LOPERAMIDE HYDROCHLORIDE
     Indication: DIARRHOEA
     Route: 048
     Dates: start: 20170507, end: 20190507

REACTIONS (5)
  - Oropharyngeal pain [Unknown]
  - Cough [Not Recovered/Not Resolved]
  - Foreign body in respiratory tract [Unknown]
  - Throat irritation [Not Recovered/Not Resolved]
  - Dyspnoea [Unknown]

NARRATIVE: CASE EVENT DATE: 20190507
